FAERS Safety Report 11809543 (Version 2)
Quarter: 2016Q1

REPORT INFORMATION
  Report Type: Spontaneous
  Country: US (occurrence: US)
  Receive Date: 20151208
  Receipt Date: 20160112
  Transmission Date: 20160525
  Serious: No
  Sender: FDA-Public Use
  Company Number: US-LEO PHARMA-238779

PATIENT
  Age: 52 Year
  Sex: Female
  Weight: 54.43 kg

DRUGS (3)
  1. PICATO [Suspect]
     Active Substance: INGENOL MEBUTATE
     Indication: ACTINIC KERATOSIS
     Route: 061
     Dates: start: 20151125, end: 20151126
  2. ESTROGEN TRANSDERMAL PATCH [Concomitant]
     Indication: PRODUCT USED FOR UNKNOWN INDICATION
  3. PROGESTERONE PILLS [Concomitant]
     Indication: PRODUCT USED FOR UNKNOWN INDICATION

REACTIONS (9)
  - Application site swelling [Recovered/Resolved]
  - Ocular discomfort [Recovered/Resolved]
  - Lacrimation increased [Recovered/Resolved]
  - Application site inflammation [Recovered/Resolved]
  - Incorrect drug administration duration [Unknown]
  - Asthenopia [Recovered/Resolved]
  - Accidental exposure to product [Unknown]
  - Ocular hyperaemia [Recovered/Resolved]
  - Rhinorrhoea [Recovered/Resolved]

NARRATIVE: CASE EVENT DATE: 20151126
